FAERS Safety Report 7510182-0 (Version None)
Quarter: 2011Q2

REPORT INFORMATION
  Report Type: 
  Country: None (occurrence: None)
  Receive Date: 20110527
  Receipt Date: 20110523
  Transmission Date: 20111010
  Serious: Yes (Other)
  Sender: FDA-Public Use
  Company Number: US-BAYER-2011-044677

PATIENT
  Age: 44 Year
  Sex: Female

DRUGS (3)
  1. PROZAC [Concomitant]
     Route: 048
  2. AVELOX [Suspect]
     Indication: UPPER RESPIRATORY TRACT INFECTION
     Dosage: 400 MG, ONCE
     Dates: start: 20110201, end: 20110201
  3. LISINOPRIL [Concomitant]

REACTIONS (5)
  - ANAPHYLACTIC SHOCK [None]
  - BLOOD PRESSURE DECREASED [None]
  - RASH [None]
  - DYSPNOEA [None]
  - SYNCOPE [None]
